FAERS Safety Report 4276358-3 (Version None)
Quarter: 2004Q1

REPORT INFORMATION
  Report Type: 
  Country: None (occurrence: None)
  Receive Date: 20040120
  Receipt Date: 20040113
  Transmission Date: 20041129
  Serious: Yes (Other)
  Sender: FDA-Public Use
  Company Number: OMPQ-PR-0401L-0035

PATIENT
  Age: 28 Year
  Sex: Male

DRUGS (1)
  1. OMNIPAQUE 140 [Suspect]
     Indication: ARTERIAL INJURY
     Dosage: 3 X 9 ML OVER 1.5 SECONDS, SINGLE

REACTIONS (1)
  - BLINDNESS TRANSIENT [None]
